FAERS Safety Report 7007330-8 (Version None)
Quarter: 2010Q3

REPORT INFORMATION
  Report Type: 
  Country: None (occurrence: None)
  Receive Date: 20100922
  Receipt Date: 20100909
  Transmission Date: 20110219
  Serious: Yes (Hospitalization)
  Sender: FDA-Public Use
  Company Number: FR-CELGENEUS-056-C5013-10090833

PATIENT
  Sex: Female
  Weight: 67 kg

DRUGS (12)
  1. THALIDOMIDE [Suspect]
     Indication: MULTIPLE MYELOMA
     Route: 048
     Dates: start: 20090627, end: 20100603
  2. MELPHALAN HYDROCHLORIDE [Suspect]
     Indication: MULTIPLE MYELOMA
     Route: 065
     Dates: start: 20090627
  3. MELPHALAN HYDROCHLORIDE [Suspect]
     Route: 065
     Dates: start: 20100827, end: 20100830
  4. PREDNISONE [Suspect]
     Indication: MULTIPLE MYELOMA
     Route: 065
     Dates: start: 20090627
  5. PREDNISONE [Suspect]
     Route: 065
     Dates: start: 20100827, end: 20100830
  6. TRANSIPEG [Concomitant]
     Indication: CONSTIPATION
     Dosage: 2 BAGS
     Route: 048
     Dates: start: 20090101
  7. EFFERALGAN [Concomitant]
     Route: 048
     Dates: start: 20091112
  8. NOCTAMIDE [Concomitant]
     Indication: PROPHYLAXIS
     Route: 048
     Dates: start: 20091201
  9. KARDEGIC [Concomitant]
     Indication: THROMBOSIS PROPHYLAXIS
     Route: 048
     Dates: start: 20100309
  10. TETRAZEPAM [Concomitant]
     Indication: SCIATICA
     Route: 048
     Dates: start: 20100810
  11. CELEBREX [Concomitant]
     Indication: SCIATICA
     Route: 048
     Dates: start: 20100810
  12. OXYCONTIN [Concomitant]
     Indication: SCIATICA
     Route: 048
     Dates: start: 20100810

REACTIONS (1)
  - SCIATICA [None]
